FAERS Safety Report 19350240 (Version 1)
Quarter: 2021Q2

REPORT INFORMATION
  Report Type: Spontaneous
  Country: US (occurrence: US)
  Receive Date: 20210601
  Receipt Date: 20210601
  Transmission Date: 20210717
  Serious: Yes (Hospitalization)
  Sender: FDA-Public Use
  Company Number: None

PATIENT
  Sex: Female

DRUGS (1)
  1. TOBRAMYCIN 300MG/5ML GEQ TOBI [Suspect]
     Active Substance: TOBRAMYCIN
     Indication: MYCOBACTERIAL DISEASE CARRIER
     Dosage: 1 VIAL BID INH ? 28 D ON? 28 D OFF
     Route: 055
     Dates: start: 20210223

REACTIONS (1)
  - Respiratory disorder [None]
